FAERS Safety Report 5369993-2 (Version None)
Quarter: 2007Q2

REPORT INFORMATION
  Report Type: 
  Country: None (occurrence: None)
  Receive Date: 20070626
  Receipt Date: 20070614
  Transmission Date: 20071010
  Serious: No
  Sender: FDA-Public Use
  Company Number: PHEH2007US05449

PATIENT
  Age: 49 Year
  Sex: Female
  Weight: 48.979 kg

DRUGS (2)
  1. ZELNORM [Suspect]
     Indication: CONSTIPATION
     Dosage: 6 MGS TWICE A WEEK
     Route: 048
     Dates: start: 20051022, end: 20070301
  2. PREVACID [Concomitant]
     Indication: GASTROOESOPHAGEAL REFLUX DISEASE
     Dosage: 30 MG, 2-3 TIMES/WEEK
     Route: 048
     Dates: start: 20050122

REACTIONS (7)
  - CHEST DISCOMFORT [None]
  - CONDITION AGGRAVATED [None]
  - MIGRAINE [None]
  - MITRAL VALVE PROLAPSE [None]
  - NAUSEA [None]
  - PALPITATIONS [None]
  - VOMITING [None]
